FAERS Safety Report 11010557 (Version 1)
Quarter: 2015Q2

REPORT INFORMATION
  Report Type: Spontaneous
  Country: US (occurrence: None)
  Receive Date: 20150409
  Receipt Date: 20150409
  Transmission Date: 20150821
  Serious: Yes (Disabling, Other)
  Sender: FDA-Public Use
  Company Number: None

PATIENT
  Age: 46 Year
  Sex: Female

DRUGS (6)
  1. SYNTHROID [Concomitant]
     Active Substance: LEVOTHYROXINE SODIUM
  2. VITAMIN D [Concomitant]
     Active Substance: CHOLECALCIFEROL
  3. SEROQUEL [Concomitant]
     Active Substance: QUETIAPINE FUMARATE
  4. ARMOUR THYROID [Suspect]
     Active Substance: THYROID, PORCINE\THYROID, UNSPECIFIED
     Indication: HYPOTHYROIDISM
     Dates: start: 20130708, end: 20130913
  5. PRISTIQ EXTENDED RELEASE [Concomitant]
     Active Substance: DESVENLAFAXINE SUCCINATE
  6. LORAZAPAM [Concomitant]
     Active Substance: LORAZEPAM

REACTIONS (8)
  - Obsessive-compulsive disorder [None]
  - Anxiety [None]
  - Product substitution issue [None]
  - Product formulation issue [None]
  - Hyperthyroidism [None]
  - Attention deficit/hyperactivity disorder [None]
  - Mental impairment [None]
  - Job dissatisfaction [None]

NARRATIVE: CASE EVENT DATE: 20130708
